FAERS Safety Report 9124726 (Version 1)
Quarter: 2013Q1

REPORT INFORMATION
  Report Type: Spontaneous
  Country: US (occurrence: US)
  Receive Date: 20130116
  Receipt Date: 20130116
  Transmission Date: 20140127
  Serious: Yes (Hospitalization, Disabling, Other)
  Sender: FDA-Public Use
  Company Number: US-009507513-1301USA003889

PATIENT
  Age: 67 Year
  Sex: Female

DRUGS (16)
  1. SINGULAIR [Suspect]
     Indication: ARTHRALGIA
  2. SINGULAIR [Suspect]
     Indication: GASTRIC DISORDER
  3. SINGULAIR [Suspect]
     Indication: NERVOUSNESS
  4. SINGULAIR [Suspect]
     Indication: RESPIRATORY DISORDER
  5. SINGULAIR [Suspect]
     Indication: THYROIDECTOMY
  6. LEVOTHYROXINE SODIUM [Suspect]
  7. CHANTIX [Suspect]
     Indication: SMOKING CESSATION THERAPY
     Route: 048
  8. METOCLOPRAMIDE [Suspect]
  9. ASPIRIN [Suspect]
  10. CALCIUM CARBONATE [Suspect]
  11. KLONOPIN [Suspect]
  12. HYDROCODONE BITARTRATE [Suspect]
  13. ALBUTEROL SULFATE\IPRATROPIUM BROMIDE [Suspect]
  14. PROAIR HFA [Suspect]
  15. ADVAIR [Suspect]
  16. NEXIUM [Suspect]

REACTIONS (6)
  - Potentiating drug interaction [Unknown]
  - Mutism [Unknown]
  - Mental impairment [Unknown]
  - Gait disturbance [Unknown]
  - Cerebrovascular accident [Unknown]
  - Abasia [Unknown]
